FAERS Safety Report 10101996 (Version 1)
Quarter: 2014Q2

REPORT INFORMATION
  Report Type: Report from Study
  Country: NL (occurrence: NL)
  Receive Date: 20140424
  Receipt Date: 20140424
  Transmission Date: 20141212
  Serious: Yes (Other)
  Sender: FDA-Public Use
  Company Number: PHHY2014NL049618

PATIENT
  Sex: Female

DRUGS (1)
  1. ZOMETA [Suspect]
     Indication: BREAST CANCER METASTATIC
     Dosage: 4 MG PER 100ML, ONCE EVERY 12 WEEKS
     Route: 042

REACTIONS (2)
  - Terminal state [Not Recovered/Not Resolved]
  - Metastases to meninges [Unknown]
